FAERS Safety Report 16674091 (Version 1)
Quarter: 2019Q3

REPORT INFORMATION
  Report Type: Spontaneous
  Country: US (occurrence: US)
  Receive Date: 20190806
  Receipt Date: 20190806
  Transmission Date: 20191004
  Serious: Yes (Other)
  Sender: FDA-Public Use
  Company Number: US-SECURA BIO, INC.-2019US007941

PATIENT

DRUGS (2)
  1. EVEROLIMUS (RAD) [Suspect]
     Active Substance: EVEROLIMUS
     Indication: BRAIN STEM GLIOMA
  2. PANOBINOSTAT [Suspect]
     Active Substance: PANOBINOSTAT
     Indication: BRAIN STEM GLIOMA
     Dosage: UNK
     Route: 065

REACTIONS (3)
  - Brain stem glioma [Unknown]
  - Drug ineffective for unapproved indication [Unknown]
  - Malignant neoplasm progression [Unknown]
